FAERS Safety Report 4871877-0 (Version None)
Quarter: 2006Q1

REPORT INFORMATION
  Report Type: 
  Country: None (occurrence: None)
  Receive Date: 20060104
  Receipt Date: 20051129
  Transmission Date: 20060701
  Serious: Yes (Hospitalization, Other)
  Sender: FDA-Public Use
  Company Number: US-MERCK-0511USA04583

PATIENT
  Age: 63 Year
  Sex: Female
  Weight: 132 kg

DRUGS (10)
  1. VIOXX [Suspect]
     Indication: ARTHRITIS
     Route: 048
     Dates: start: 19991022, end: 20040608
  2. HUMALOG [Concomitant]
     Indication: DIABETES MELLITUS INSULIN-DEPENDENT
     Route: 051
  3. HUMULIN N [Concomitant]
     Indication: DIABETES MELLITUS INSULIN-DEPENDENT
     Route: 051
  4. ADALAT [Concomitant]
     Route: 065
  5. GUAIFENESIN [Concomitant]
     Route: 065
  6. NEXIUM [Concomitant]
     Route: 065
  7. ALLOPURINOL [Concomitant]
     Indication: GOUT
     Route: 065
  8. COZAAR [Concomitant]
     Route: 065
  9. TRICOR [Concomitant]
     Indication: BLOOD CHOLESTEROL INCREASED
     Route: 065
  10. BUMETANIDE [Concomitant]
     Route: 065

REACTIONS (10)
  - ANGINA PECTORIS [None]
  - ANXIETY [None]
  - ASTHMA [None]
  - CARDIAC FAILURE CONGESTIVE [None]
  - CARDIOMEGALY [None]
  - CHRONIC OBSTRUCTIVE PULMONARY DISEASE [None]
  - CORONARY ARTERY DISEASE [None]
  - MYOCARDIAL INFARCTION [None]
  - SINUSITIS [None]
  - SLEEP APNOEA SYNDROME [None]
